FAERS Safety Report 6856868-2 (Version None)
Quarter: 2010Q3

REPORT INFORMATION
  Report Type: 
  Country: None (occurrence: None)
  Receive Date: 20100714
  Receipt Date: 20100630
  Transmission Date: 20110219
  Serious: Yes (Hospitalization)
  Sender: FDA-Public Use
  Company Number: CV20100311

PATIENT
  Age: 17 Year
  Sex: Female

DRUGS (11)
  1. PROPOFOL [Suspect]
     Indication: INDUCTION OF ANAESTHESIA
     Dosage: INTRAVENOUS
     Route: 042
     Dates: start: 20100517, end: 20100517
  2. ATRACURIUM BESYLATE [Concomitant]
  3. SUFENTA (SUFENTANIL CITRATE) (SUFENTANIL CITRATE) [Concomitant]
  4. NEURONTIN [Concomitant]
  5. BETADINE (POVIDONE-IODINE) (POVIDONE-IODINE) [Concomitant]
  6. NAROPEINE (ROPIVACAINE HYDROCHLORIDE) (ROPIVACAINE HYDROCHLORIDE) [Concomitant]
  7. DROLEPTAN (DROPERIDOL) (DROPERIDOL) [Concomitant]
  8. LOVENOX (HEPARIN-FRACTION, SODIUM SALT) (HEPARIN-FRACTION, SODIUM SALT [Concomitant]
  9. KETAMINE (KETAMINE) (KETAMINE) [Concomitant]
  10. AUGMENTIN (AMOXICILLIN W/CLAVULANATE POTASSIUM) (AMOXICILLIN W/CLAVULA [Concomitant]
  11. SEVORANE (SEVOFLURANE) (SEVOFLURANE) [Concomitant]

REACTIONS (2)
  - HAEMATURIA [None]
  - RENAL FAILURE ACUTE [None]
